FAERS Safety Report 6698675-X (Version None)
Quarter: 2010Q2

REPORT INFORMATION
  Report Type: 
  Country: None (occurrence: None)
  Receive Date: 20100427
  Receipt Date: 20091130
  Transmission Date: 20101027
  Serious: No
  Sender: FDA-Public Use
  Company Number: US-ASTRAZENECA-2009SE29913

PATIENT
  Age: 54 Year
  Sex: Female

DRUGS (3)
  1. ZOMIG [Suspect]
     Route: 045
  2. EXCEDRIN (MIGRAINE) [Concomitant]
  3. LEVOTHROID [Concomitant]

REACTIONS (1)
  - FEELING COLD [None]
